FAERS Safety Report 22214736 (Version 1)
Quarter: 2023Q2

REPORT INFORMATION
  Report Type: Spontaneous
  Country: RO (occurrence: RO)
  Receive Date: 20230415
  Receipt Date: 20230415
  Transmission Date: 20230722
  Serious: Yes (Death, Other)
  Sender: FDA-Public Use
  Company Number: RO-EMA-DD-20200702-bhardwaj_r-130554

PATIENT
  Age: 63 Year
  Sex: Female

DRUGS (17)
  1. LEFLUNOMIDE [Suspect]
     Active Substance: LEFLUNOMIDE
     Indication: Polychondritis
     Dosage: 20 MILLIGRAM, ONCE A DAY
     Route: 065
  2. LEFLUNOMIDE [Suspect]
     Active Substance: LEFLUNOMIDE
     Dosage: 10 MILLIGRAM, ONCE A DAY
     Route: 065
  3. AZATHIOPRINE [Suspect]
     Active Substance: AZATHIOPRINE
     Indication: Polychondritis
     Dosage: STOPPED DUE TO INTOLERANCE
     Route: 065
  4. CYCLOPHOSPHAMIDE [Suspect]
     Active Substance: CYCLOPHOSPHAMIDE
     Indication: Polychondritis
     Dosage: UNK UNK, QMN
     Route: 048
  5. CYCLOPHOSPHAMIDE [Suspect]
     Active Substance: CYCLOPHOSPHAMIDE
     Dosage: 15 MILLIGRAM/KILOGRAM EVERY MONTH
     Route: 042
  6. CYCLOSPORINE [Suspect]
     Active Substance: CYCLOSPORINE
     Indication: Dry eye
     Dosage: STOPPED DUE TO SEVERE HYPERTENSION AND RENAL INSUFFICIENCY
     Route: 065
  7. CYCLOSPORINE [Suspect]
     Active Substance: CYCLOSPORINE
     Dosage: 1 MILLIGRAM
     Route: 065
  8. INFLIXIMAB [Suspect]
     Active Substance: INFLIXIMAB
     Indication: Polychondritis
     Dosage: 3 MILLIGRAM/KILOGRAM (A SINGLE INFUSION)
     Route: 042
  9. METHYLPREDNISOLONE [Suspect]
     Active Substance: METHYLPREDNISOLONE
     Indication: Polychondritis
     Dosage: 1 MILLIGRAM/KILOGRAM, ONCE A DAY ( (ONE MONTH WITH TAPERING))
     Route: 048
  10. METHYLPREDNISOLONE [Suspect]
     Active Substance: METHYLPREDNISOLONE
     Dosage: 1 GRAM, ONCE A DAY
     Route: 042
  11. TROPICAMIDE [Concomitant]
     Active Substance: TROPICAMIDE
     Indication: Polychondritis
     Dosage: 1 PERCENT (3 GUT/DAY))
     Route: 061
  12. TOBRAMYCIN [Concomitant]
     Active Substance: TOBRAMYCIN
     Indication: Polychondritis
     Dosage: 3 MILLIGRAM
     Route: 061
  13. OFLOXACIN [Concomitant]
     Active Substance: OFLOXACIN
     Indication: Polychondritis
     Dosage: 0.3 PERCENT (3 GUT/DAY)
     Route: 061
  14. DEXAMETHASONE [Concomitant]
     Active Substance: DEXAMETHASONE
     Indication: Polychondritis
     Dosage: 1 MILLIGRAM
     Route: 061
  15. TIMOLOL [Concomitant]
     Active Substance: TIMOLOL
     Indication: Polychondritis
     Dosage: 0.5 PERCENT (0.5 % (2 GUT/DAY))
     Route: 065
  16. IMIPENEM [Concomitant]
     Active Substance: IMIPENEM
     Indication: Polychondritis
     Dosage: UNK
     Route: 065
  17. CIPROFLOXACIN [Concomitant]
     Active Substance: CIPROFLOXACIN
     Indication: Polychondritis
     Dosage: UNK
     Route: 065

REACTIONS (8)
  - Cardio-respiratory arrest [Fatal]
  - Renal failure [Unknown]
  - Escherichia sepsis [Recovering/Resolving]
  - Hypertension [Unknown]
  - Arthritis [Unknown]
  - Sinonasal papilloma [Unknown]
  - Diarrhoea [Recovering/Resolving]
  - Laryngeal disorder [Unknown]
